FAERS Safety Report 18512879 (Version 1)
Quarter: 2020Q4

REPORT INFORMATION
  Report Type: Other
  Country: IN (occurrence: IN)
  Receive Date: 20201117
  Receipt Date: 20201117
  Transmission Date: 20210114
  Serious: Yes (Other)
  Sender: FDA-Public Use
  Company Number: IN-DEXPHARM-20201040

PATIENT
  Age: 50 Year
  Sex: Male

DRUGS (3)
  1. TENOFOVIR [Suspect]
     Active Substance: TENOFOVIR
  2. DICLOFENAC [Suspect]
     Active Substance: DICLOFENAC
  3. RITONAVIR. [Suspect]
     Active Substance: RITONAVIR

REACTIONS (1)
  - Renal tubular acidosis [Recovered/Resolved]
